FAERS Safety Report 8384885-2 (Version None)
Quarter: 2012Q2

REPORT INFORMATION
  Report Type: 
  Country: None (occurrence: None)
  Receive Date: 20120524
  Receipt Date: 20120517
  Transmission Date: 20120825
  Serious: No
  Sender: FDA-Public Use
  Company Number: US-PFIZER INC-2012120305

PATIENT
  Sex: Female
  Weight: 40 kg

DRUGS (1)
  1. GENOTROPIN [Suspect]
     Indication: TURNER'S SYNDROME
     Dosage: 5 MG, INJECT 1MG SUBCUTANEOUSLY 6 TIMES PER WEEK
     Route: 058
     Dates: start: 20090517

REACTIONS (2)
  - MUSCULAR WEAKNESS [None]
  - INJECTION SITE PAIN [None]
